FAERS Safety Report 7930605-2 (Version None)
Quarter: 2011Q4

REPORT INFORMATION
  Report Type: 
  Country: None (occurrence: None)
  Receive Date: 20111117
  Receipt Date: 20111104
  Transmission Date: 20120403
  Serious: Yes (Hospitalization)
  Sender: FDA-Public Use
  Company Number: 877273

PATIENT
  Age: 55 Year
  Sex: Female

DRUGS (6)
  1. LEVOTHYROXINE SODIUM [Concomitant]
  2. OXYCONTIN [Concomitant]
  3. OXALIPLATIN [Suspect]
     Indication: RECTAL CANCER
     Dosage: INTRAVENOUS
     Route: 042
     Dates: start: 20100804
  4. OXYCODONE HCL [Concomitant]
  5. RALTITREXED DISODIUM [Suspect]
     Indication: RECTAL CANCER
     Dosage: INTRAVENOUS
     Route: 042
     Dates: start: 20100804
  6. MOTILIUM [Concomitant]

REACTIONS (4)
  - PANCYTOPENIA [None]
  - PETECHIAE [None]
  - RECTAL HAEMORRHAGE [None]
  - LYMPHOEDEMA [None]
